FAERS Safety Report 15665836 (Version 1)
Quarter: 2018Q4

REPORT INFORMATION
  Report Type: Spontaneous
  Country: US (occurrence: US)
  Receive Date: 20181128
  Receipt Date: 20181128
  Transmission Date: 20190205
  Serious: No
  Sender: FDA-Public Use
  Company Number: US-TARO-2017TAR01102

PATIENT
  Sex: Female
  Weight: 81.63 kg

DRUGS (3)
  1. CARBAMAZEPINE TABLETS CHEWABLE USP 100MG [Suspect]
     Active Substance: CARBAMAZEPINE
     Indication: NEURALGIA
     Dosage: 100 MG, 2X/DAY
     Route: 048
     Dates: start: 201711, end: 2017
  2. HYDROCODONE [Concomitant]
     Active Substance: HYDROCODONE
     Dosage: 1 TABLETS, AS NEEDED
  3. CARBAMAZEPINE TABLETS CHEWABLE USP 100MG [Suspect]
     Active Substance: CARBAMAZEPINE
     Dosage: 200 MG, 2X/DAY
     Route: 048
     Dates: start: 2017, end: 20171219

REACTIONS (6)
  - Hypoaesthesia oral [Unknown]
  - Hypophagia [Unknown]
  - Glossodynia [Not Recovered/Not Resolved]
  - Drug ineffective for unapproved indication [Recovered/Resolved]
  - Nasopharyngitis [Not Recovered/Not Resolved]
  - Oral pain [Not Recovered/Not Resolved]

NARRATIVE: CASE EVENT DATE: 2017
